FAERS Safety Report 8898798 (Version 1)
Quarter: 2012Q4

REPORT INFORMATION
  Report Type: 
  Country: CN (occurrence: CN)
  Receive Date: 20121109
  Receipt Date: 20121109
  Transmission Date: 20130627
  Serious: Yes (Other)
  Sender: FDA-Public Use
  Company Number: CN-ABBOTT-12P-035-1003818-00

PATIENT
  Age: 33 Year
  Sex: Male

DRUGS (2)
  1. DEPAKINE [Suspect]
     Indication: EPILEPSY
     Dosage: 1 dosage form daily
     Route: 048
     Dates: start: 20120310, end: 20120608
  2. DEPAKINE [Suspect]
     Route: 048
     Dates: start: 20120610

REACTIONS (3)
  - Syncope [Unknown]
  - Fall [Unknown]
  - Epilepsy [Recovered/Resolved]
